FAERS Safety Report 8403111-9 (Version None)
Quarter: 2012Q2

REPORT INFORMATION
  Report Type: 
  Country: None (occurrence: None)
  Receive Date: 20120601
  Receipt Date: 20120530
  Transmission Date: 20120825
  Serious: Yes (Other)
  Sender: FDA-Public Use
  Company Number: FR-JNJFOC-20120508149

PATIENT
  Age: 55 Year
  Sex: Male

DRUGS (15)
  1. FLUOROURACIL [Concomitant]
     Route: 065
  2. ZOLPIDEM [Concomitant]
     Route: 065
  3. ONDANSETRON [Concomitant]
     Route: 065
  4. MASITINIB (CHEMOTHERAPY) [Suspect]
     Indication: PRODUCT USED FOR UNKNOWN INDICATION
     Route: 048
  5. OXYCODONE HYDROCHLORIDE [Suspect]
     Route: 065
  6. LEUCOVORIN CALCIUM [Concomitant]
     Route: 065
  7. CETIRIZINE HYDROCHLORIDE [Suspect]
     Route: 065
  8. CETIRIZINE HYDROCHLORIDE [Suspect]
     Indication: PRODUCT USED FOR UNKNOWN INDICATION
     Route: 065
  9. OXYCODONE HYDROCHLORIDE [Suspect]
     Indication: PRODUCT USED FOR UNKNOWN INDICATION
     Route: 065
  10. METOCLOPRAMIDE [Suspect]
     Indication: PRODUCT USED FOR UNKNOWN INDICATION
     Route: 065
  11. LEUCOVORIN CALCIUM [Concomitant]
     Route: 065
  12. ONDANSETRON [Concomitant]
     Route: 065
  13. FLUOROURACIL [Concomitant]
     Route: 065
  14. POLYETHYLENE GLYCOL [Concomitant]
     Route: 065
  15. OXALIPLATIN [Concomitant]
     Route: 065

REACTIONS (1)
  - STEVENS-JOHNSON SYNDROME [None]
